FAERS Safety Report 12341724 (Version 5)
Quarter: 2016Q4

REPORT INFORMATION
  Report Type: Report from Study
  Country: CA (occurrence: CA)
  Receive Date: 20160506
  Receipt Date: 20161122
  Transmission Date: 20170207
  Serious: Yes (Other)
  Sender: FDA-Public Use
  Company Number: CA-INCYTE CORPORATION-2016IN002534

PATIENT
  Age: 69 Year
  Sex: Male

DRUGS (3)
  1. JAKAVI [Suspect]
     Active Substance: RUXOLITINIB
     Dosage: 10 MG, BID
     Route: 048
  2. JAKAVI [Suspect]
     Active Substance: RUXOLITINIB
     Dosage: 15 MG, BID
     Route: 048
  3. JAKAVI [Suspect]
     Active Substance: RUXOLITINIB
     Indication: POLYCYTHAEMIA VERA
     Dosage: 20 MG, BID
     Route: 048
     Dates: start: 20160408

REACTIONS (10)
  - Feeding disorder [Unknown]
  - Malaise [Unknown]
  - Blood pressure increased [Recovering/Resolving]
  - Weight increased [Unknown]
  - Peripheral swelling [Unknown]
  - Fluid retention [Unknown]
  - Oral mucosal blistering [Unknown]
  - Rheumatoid arthritis [Unknown]
  - Gastric dilatation [Unknown]
  - Weight decreased [Unknown]
